FAERS Safety Report 7398387-3 (Version None)
Quarter: 2011Q2

REPORT INFORMATION
  Report Type: 
  Country: None (occurrence: None)
  Receive Date: 20110406
  Receipt Date: 20090608
  Transmission Date: 20111010
  Serious: Yes (Other)
  Sender: FDA-Public Use
  Company Number: US-BAYER-200923865NA

PATIENT
  Sex: Male
  Weight: 79.819 kg

DRUGS (24)
  1. FENTANYL [Concomitant]
     Dosage: 5ML/3ML/2ML
     Route: 042
     Dates: start: 20000419
  2. PANCURONIUM BROMIDE [Concomitant]
     Dosage: 10ML/4ML/4ML
     Route: 042
     Dates: start: 20000410
  3. AMIDATE [Concomitant]
     Dosage: 20 MG, UNK
     Route: 042
     Dates: start: 20000419
  4. TRASYLOL [Suspect]
     Indication: AORTIC SURGERY
     Dosage: 1 ML, TEST DOSE
     Route: 042
     Dates: start: 20000419, end: 20000419
  5. VISTARIL [Concomitant]
     Dosage: 25 MG/AS NEEDED
     Route: 048
  6. METOPROLOL [Concomitant]
     Dosage: 100 MG
     Route: 042
     Dates: start: 20000419
  7. PEPCID [Concomitant]
     Dosage: 10 MG/DAILY
     Route: 048
  8. DIPRIVAN [Concomitant]
     Dosage: 200 MG, UNK
     Route: 042
     Dates: start: 20000419
  9. DECADRON [Concomitant]
     Dosage: 20 MG, UNK
     Route: 042
     Dates: start: 20000419
  10. RED BLOOD CELLS [Concomitant]
     Dosage: 2 U, UNK
     Dates: start: 20000423
  11. TRASYLOL [Suspect]
     Dosage: 50 ML/HR
     Dates: start: 20000419, end: 20000419
  12. HYDROCODONE [Concomitant]
     Dosage: AS NEEDED
  13. HEPARIN [Concomitant]
     Dosage: 50,000 UNITS
     Route: 042
     Dates: start: 20000419
  14. PROTAMINE SULFATE [Concomitant]
     Dosage: 250 MG, UNK
     Route: 042
     Dates: start: 20000419
  15. ANCEF [Concomitant]
     Dosage: 1 G, UNK
     Dates: start: 20000419
  16. TRASYLOL [Suspect]
     Dosage: 500 ML, LOADING DOSE
     Dates: start: 20000419, end: 20000419
  17. AMPICILLIN [Concomitant]
     Indication: TOOTH EXTRACTION
     Dosage: 500 MG, UNK
     Route: 048
  18. VALIUM [Concomitant]
     Dosage: 10 MG, UNK
     Route: 042
     Dates: start: 20000419
  19. BREVIBLOC [Concomitant]
     Dosage: UNK
     Route: 042
     Dates: start: 20000419
  20. GERITOL [FOLIC ACID,IRON,MINERALS NOS,VITAMINS NOS] [Concomitant]
     Dosage: ONE/DAILY
     Route: 048
  21. GENTAMICIN [Concomitant]
     Dosage: 100 ML, UNK
     Route: 042
     Dates: start: 20000419
  22. RED BLOOD CELLS [Concomitant]
     Dosage: 1 U, UNK
     Dates: start: 20000419
  23. METOPROLOL [Concomitant]
     Dosage: 100 MG, BID
     Route: 048
  24. NORCURON [Concomitant]
     Dosage: UNK
     Route: 042
     Dates: start: 20000419

REACTIONS (13)
  - ANHEDONIA [None]
  - EMOTIONAL DISTRESS [None]
  - ANXIETY [None]
  - INJURY [None]
  - CEREBROVASCULAR ACCIDENT [None]
  - RENAL FAILURE [None]
  - RENAL IMPAIRMENT [None]
  - RENAL INJURY [None]
  - UNEVALUABLE EVENT [None]
  - MULTI-ORGAN FAILURE [None]
  - PAIN [None]
  - STRESS [None]
  - FEAR [None]
